FAERS Safety Report 4658413-9 (Version None)
Quarter: 2005Q2

REPORT INFORMATION
  Report Type: 
  Country: None (occurrence: None)
  Receive Date: 20050502
  Receipt Date: 20050502
  Transmission Date: 20051028
  Serious: No
  Sender: FDA-Public Use
  Company Number: None

PATIENT
  Age: 27 Year
  Sex: Female
  Weight: 101.6057 kg

DRUGS (3)
  1. LACTATED RINGER'S [Suspect]
     Indication: CAESAREAN SECTION
     Dosage: 500 CC/  IV
     Route: 042
     Dates: start: 20050414
  2. LACTATED RINGER'S [Suspect]
     Indication: PREGNANCY
     Dosage: 500 CC/  IV
     Route: 042
     Dates: start: 20050414
  3. LATEX CATHETER [Concomitant]

REACTIONS (2)
  - PRURITUS [None]
  - URTICARIA [None]
